FAERS Safety Report 9147647 (Version 1)
Quarter: 2013Q1

REPORT INFORMATION
  Report Type: Report from Study
  Country: US (occurrence: US)
  Receive Date: 20130307
  Receipt Date: 20130307
  Transmission Date: 20140127
  Serious: Yes (Other)
  Sender: FDA-Public Use
  Company Number: US-US-EMD SERONO, INC.-7197340

PATIENT
  Sex: Female

DRUGS (1)
  1. REBIF [Suspect]
     Indication: PRODUCT USED FOR UNKNOWN INDICATION
     Route: 058
     Dates: start: 20120820

REACTIONS (4)
  - Diabetes mellitus [Unknown]
  - Eye swelling [Recovering/Resolving]
  - Eye pain [Unknown]
  - Vision blurred [Not Recovered/Not Resolved]
